FAERS Safety Report 5715250-1 (Version None)
Quarter: 2008Q2

REPORT INFORMATION
  Report Type: 
  Country: None (occurrence: None)
  Receive Date: 20080423
  Receipt Date: 20080415
  Transmission Date: 20081010
  Serious: Yes (Hospitalization)
  Sender: FDA-Public Use
  Company Number: US-PFIZER INC-2008019713

PATIENT
  Sex: Female
  Weight: 50.8 kg

DRUGS (8)
  1. SU-011,248 [Suspect]
     Indication: GLIOBLASTOMA
     Route: 048
     Dates: start: 20080108, end: 20080225
  2. BACTRIM DS [Concomitant]
  3. CALCIUM WITH VITAMIN D [Concomitant]
     Dates: start: 20070521
  4. COMPAZINE [Concomitant]
     Dates: start: 20080103
  5. LIPITOR [Concomitant]
     Dates: start: 20070521
  6. ALL OTHER THERAPEUTIC PRODUCTS [Concomitant]
     Dosage: FREQ:PR
     Dates: start: 20070814
  7. RITALIN [Concomitant]
     Dates: start: 20080204
  8. LEVOTHYROXINE SODIUM [Concomitant]
     Dates: start: 20080222

REACTIONS (1)
  - SYNCOPE [None]
